FAERS Safety Report 23130844 (Version 1)
Quarter: 2023Q4

REPORT INFORMATION
  Report Type: Spontaneous
  Country: CN (occurrence: CN)
  Receive Date: 20231031
  Receipt Date: 20231031
  Transmission Date: 20240110
  Serious: Yes (Hospitalization, Other)
  Sender: FDA-Public Use
  Company Number: CN-009507513-2310CHN012468

PATIENT
  Age: 60 Year
  Sex: Male
  Weight: 47 kg

DRUGS (2)
  1. KEYTRUDA [Suspect]
     Active Substance: PEMBROLIZUMAB
     Indication: Lung neoplasm malignant
     Dosage: UNK UNK, Q3W
     Dates: start: 20230626
  2. KEYTRUDA [Suspect]
     Active Substance: PEMBROLIZUMAB
     Dosage: 100 MG, ONCE, IV DRIP
     Route: 041
     Dates: start: 20230905, end: 20230905

REACTIONS (4)
  - Xerophthalmia [Recovering/Resolving]
  - Dry mouth [Recovering/Resolving]
  - Aptyalism [Unknown]
  - Underdose [Unknown]

NARRATIVE: CASE EVENT DATE: 20230905
